FAERS Safety Report 24427321 (Version 1)
Quarter: 2024Q4

REPORT INFORMATION
  Report Type: Report from Study
  Country: JP (occurrence: JP)
  Receive Date: 20241011
  Receipt Date: 20241011
  Transmission Date: 20250114
  Serious: Yes (Life-Threatening, Other)
  Sender: PFIZER
  Company Number: JP-PFIZER INC-PV202400131590

PATIENT
  Age: 72 Year
  Sex: Male

DRUGS (5)
  1. METHYLPREDNISOLONE SODIUM SUCCINATE [Suspect]
     Active Substance: METHYLPREDNISOLONE SODIUM SUCCINATE
     Indication: Interstitial lung disease
     Dosage: 1000 MG
  2. TEGAFUR [Concomitant]
     Active Substance: TEGAFUR
     Indication: Lung neoplasm malignant
     Dosage: UNK
  3. GIMERACIL [Concomitant]
     Active Substance: GIMERACIL
     Indication: Lung neoplasm malignant
     Dosage: UNK
  4. OTERACIL POTASSIUM [Concomitant]
     Active Substance: OTERACIL POTASSIUM
     Indication: Lung neoplasm malignant
     Dosage: UNK
  5. PACLITAXEL [Concomitant]
     Active Substance: PACLITAXEL
     Indication: Lung neoplasm malignant
     Dosage: UNK

REACTIONS (1)
  - Drug ineffective [Unknown]
